FAERS Safety Report 20602740 (Version 4)
Quarter: 2022Q4

REPORT INFORMATION
  Report Type: Spontaneous
  Country: IN (occurrence: IN)
  Receive Date: 20220316
  Receipt Date: 20221212
  Transmission Date: 20230113
  Serious: Yes (Other)
  Sender: FDA-Public Use
  Company Number: IN-PFIZER INC-2021847760

PATIENT
  Age: 54 Year
  Sex: Female
  Weight: 75 kg

DRUGS (13)
  1. PALBOCICLIB [Suspect]
     Active Substance: PALBOCICLIB
     Indication: Breast cancer metastatic
     Dosage: 125 MG, 1X/DAY
     Route: 048
     Dates: start: 20201024
  2. PALBOCICLIB [Suspect]
     Active Substance: PALBOCICLIB
     Indication: Breast cancer female
     Dosage: 125 MG, CYCLIC (21 DAYS ON 7 DAYS OFF)
  3. PALBOCICLIB [Suspect]
     Active Substance: PALBOCICLIB
     Dosage: 125 MG, 1X/DAY
     Route: 048
  4. ZOLEDRONIC ACID [Concomitant]
     Active Substance: ZOLEDRONIC ACID
     Dosage: 4 MG IN 100CC NS OVER 15MINS
  5. LETROZOLE [Concomitant]
     Active Substance: LETROZOLE
     Dosage: 1 DF, DAILY (0-1-0)
  6. LETROZOLE [Concomitant]
     Active Substance: LETROZOLE
     Dosage: 2.5 MG, 1X/DAY
  7. SHELCAL [CALCIUM CARBONATE;COLECALCIFEROL] [Concomitant]
     Dosage: 500 MG, 2X/DAY (1-0-1)
  8. FOLVITE [FOLIC ACID] [Concomitant]
     Dosage: 2 DF, DAILY (1-0-1)
  9. FOLVITE [FOLIC ACID] [Concomitant]
     Dosage: 5 MG, 2X/DAY
  10. LIVOGEN [CYANOCOBALAMIN;FERRIC AMMONIUM CITRATE;GLYCYRRHIZA GLABRA LIQ [Concomitant]
     Dosage: 1 DF, DAILY (1-0-0)
  11. DOLO 650 [Concomitant]
     Indication: Pain
     Dosage: UNK, AS NEEDED, AFTER FOOD
  12. DOLO 650 [Concomitant]
     Indication: Pyrexia
     Dosage: 650 MG, SOS IF PAIN/FEVER
  13. LEVOCETIRIZINE DIHYDROCHLORIDE [Concomitant]
     Active Substance: LEVOCETIRIZINE DIHYDROCHLORIDE
     Indication: Pruritus
     Dosage: 5 MG, 2X/DAY, 7 DAYS

REACTIONS (5)
  - Neutrophil count abnormal [Unknown]
  - Haemoglobin decreased [Not Recovered/Not Resolved]
  - White blood cell disorder [Unknown]
  - Weight increased [Unknown]
  - Creatinine renal clearance increased [Unknown]

NARRATIVE: CASE EVENT DATE: 20220304
